FAERS Safety Report 6588696-X (Version None)
Quarter: 2010Q1

REPORT INFORMATION
  Report Type: 
  Country: None (occurrence: None)
  Receive Date: 20100218
  Receipt Date: 20100212
  Transmission Date: 20100710
  Serious: Yes (Hospitalization, Other)
  Sender: FDA-Public Use
  Company Number: GB-BAYER-201014197GPV

PATIENT
  Age: 69 Year
  Sex: Male
  Weight: 75 kg

DRUGS (7)
  1. ACETYLSALICYLIC ACID [Suspect]
     Indication: CARDIOVASCULAR EVENT PROPHYLAXIS
     Route: 048
     Dates: start: 20081212, end: 20091120
  2. FOLIC ACID [Concomitant]
     Indication: ANAEMIA
     Route: 048
     Dates: start: 20031024
  3. IRBESTARTAN + HYDROCHLOROTHIAZIDE [Concomitant]
     Indication: ESSENTIAL HYPERTENSION
     Dosage: 300MG + 12.5MG
     Route: 048
     Dates: start: 20050211
  4. ADIZEM XL MR [Concomitant]
     Indication: ESSENTIAL HYPERTENSION
     Route: 048
     Dates: start: 20051228
  5. OMEPRAZOLE [Concomitant]
     Indication: DYSPEPSIA
     Route: 048
     Dates: start: 20080225
  6. DOXAZOSIN MESILATE [Concomitant]
     Indication: ESSENTIAL HYPERTENSION
     Route: 048
     Dates: start: 20080225
  7. ALFUZOSIN HYDROCHLORIDE [Concomitant]
     Indication: PROSTATISM
     Route: 048
     Dates: start: 20091214

REACTIONS (11)
  - ANAEMIA [None]
  - BLADDER MASS [None]
  - BLOOD PARATHYROID HORMONE ABNORMAL [None]
  - HAEMATURIA [None]
  - HYDRONEPHROSIS [None]
  - HYPERCALCAEMIA [None]
  - PROSTATIC SPECIFIC ANTIGEN INCREASED [None]
  - PROSTATISM [None]
  - PRURITUS [None]
  - RENAL IMPAIRMENT [None]
  - URINARY TRACT INFECTION [None]
